FAERS Safety Report 7377341-1 (Version None)
Quarter: 2011Q1

REPORT INFORMATION
  Report Type: 
  Country: None (occurrence: None)
  Receive Date: 20110328
  Receipt Date: 20110318
  Transmission Date: 20110831
  Serious: Yes (Hospitalization)
  Sender: FDA-Public Use
  Company Number: IT-JNJFOC-20110100104

PATIENT
  Sex: Female

DRUGS (2)
  1. HALOPERIDOL [Suspect]
     Indication: ILL-DEFINED DISORDER
     Route: 048
  2. ALL OTHER THERAPEUTIC PRODUCTS [Suspect]
     Indication: ILL-DEFINED DISORDER
     Route: 065

REACTIONS (3)
  - DYSTONIA [None]
  - DYSKINESIA [None]
  - SELF INJURIOUS BEHAVIOUR [None]
